FAERS Safety Report 18003046 (Version 3)
Quarter: 2025Q4

REPORT INFORMATION
  Report Type: Report from Study
  Country: EU (occurrence: EU)
  Receive Date: 20200710
  Receipt Date: 20251002
  Transmission Date: 20260117
  Serious: Yes (Hospitalization)
  Sender: ROCHE
  Company Number: None

PATIENT
  Sex: Female

DRUGS (1)
  1. MABTHERA [Suspect]
     Active Substance: RITUXIMAB
     Indication: Myasthenia gravis
     Route: 042

REACTIONS (4)
  - Oral herpes [Unknown]
  - Breast abscess [Unknown]
  - Lymphopenia [Unknown]
  - Off label use [Unknown]
